FAERS Safety Report 16329261 (Version 1)
Quarter: 2019Q2

REPORT INFORMATION
  Report Type: Spontaneous
  Country: US (occurrence: US)
  Receive Date: 20190520
  Receipt Date: 20190520
  Transmission Date: 20190711
  Serious: No
  Sender: FDA-Public Use
  Company Number: US-BION-007570

PATIENT
  Sex: Female

DRUGS (1)
  1. DG HEALTH IBUPROFEN [Suspect]
     Active Substance: IBUPROFEN
     Indication: PRODUCT USED FOR UNKNOWN INDICATION
     Dosage: COUNT/SIZE: 300 CT

REACTIONS (2)
  - Product odour abnormal [Unknown]
  - Poor quality product administered [Not Recovered/Not Resolved]
